FAERS Safety Report 22101042 (Version 2)
Quarter: 2023Q1

REPORT INFORMATION
  Report Type: Report from Study
  Country: US (occurrence: US)
  Receive Date: 20230316
  Receipt Date: 20230318
  Transmission Date: 20230417
  Serious: No
  Sender: FDA-Public Use
  Company Number: US-002147023-NVSC2023US059599

PATIENT
  Sex: Female

DRUGS (1)
  1. COSENTYX [Suspect]
     Active Substance: SECUKINUMAB
     Indication: Psoriasis
     Dosage: 300 MG, QMO (DOSE ON 2/8, AT ABOUT 3 WEEK MARK AFTER INJECTION (2/27-2/28)
     Route: 058

REACTIONS (2)
  - Psoriasis [Unknown]
  - Eye pain [Unknown]
